FAERS Safety Report 7175796-9 (Version None)
Quarter: 2010Q4

REPORT INFORMATION
  Report Type: 
  Country: None (occurrence: None)
  Receive Date: 20101220
  Receipt Date: 20100402
  Transmission Date: 20110411
  Serious: No
  Sender: FDA-Public Use
  Company Number: US-AMGEN-TCS403632

PATIENT

DRUGS (2)
  1. ENBREL [Suspect]
     Indication: RHEUMATOID ARTHRITIS
     Dosage: 25 MG, Q2WK
     Route: 058
     Dates: start: 20100330
  2. UNKNOWN [Concomitant]
     Dosage: UNK UNK, UNK

REACTIONS (8)
  - CHAPPED LIPS [None]
  - DEFORMITY [None]
  - EYELID EXFOLIATION [None]
  - EYELID PAIN [None]
  - GLOSSODYNIA [None]
  - LIP SWELLING [None]
  - RASH [None]
  - RASH MACULAR [None]
